FAERS Safety Report 4263846-9 (Version None)
Quarter: 2004Q1

REPORT INFORMATION
  Report Type: 
  Country: None (occurrence: None)
  Receive Date: 20040106
  Receipt Date: 20031218
  Transmission Date: 20041129
  Serious: Yes (Death)
  Sender: FDA-Public Use
  Company Number: PHHO2003ES16298

PATIENT
  Age: 53 Year
  Sex: Male

DRUGS (3)
  1. NEORAL [Suspect]
     Indication: LIVER TRANSPLANT
     Dosage: 125 MG / DAY
     Route: 048
     Dates: start: 20021204, end: 20031209
  2. CELLCEPT                                /USA/ [Concomitant]
     Indication: LIVER TRANSPLANT
     Dosage: 4000 MG
     Dates: start: 20031204, end: 20031209
  3. PREDNISONE [Concomitant]
     Indication: LIVER TRANSPLANT
     Dosage: 5 MG, QD
     Dates: start: 20031127, end: 20031209

REACTIONS (5)
  - GENERAL PHYSICAL HEALTH DETERIORATION [None]
  - HEPATIC LESION [None]
  - HEPATIC NEOPLASM MALIGNANT [None]
  - METASTASES TO LUNG [None]
  - PYREXIA [None]
